FAERS Safety Report 15742459 (Version 5)
Quarter: 2019Q4

REPORT INFORMATION
  Report Type: Spontaneous
  Country: US (occurrence: US)
  Receive Date: 20181219
  Receipt Date: 20191031
  Transmission Date: 20200122
  Serious: Yes (Congenital Anomaly, Other)
  Sender: FDA-Public Use
  Company Number: PHEH2018US053689

PATIENT
  Sex: Female

DRUGS (3)
  1. ZOFRAN ODT [Suspect]
     Active Substance: ONDANSETRON HYDROCHLORIDE
     Indication: FOETAL EXPOSURE DURING PREGNANCY
     Route: 064
  2. ZOFRAN [Suspect]
     Active Substance: ONDANSETRON HYDROCHLORIDE
     Indication: FOETAL EXPOSURE DURING PREGNANCY
     Dosage: MOTHER DOSE: 08 MG
     Route: 064
  3. ZOFRAN [Suspect]
     Active Substance: ONDANSETRON HYDROCHLORIDE
     Indication: FOETAL EXPOSURE DURING PREGNANCY
     Route: 064

REACTIONS (33)
  - Cleft palate [Unknown]
  - Cough [Unknown]
  - Rhinitis allergic [Unknown]
  - Asthma [Unknown]
  - Pharyngitis streptococcal [Unknown]
  - Tracheitis [Unknown]
  - Deafness [Unknown]
  - Bronchiolitis [Unknown]
  - Oropharyngeal pain [Unknown]
  - Rhinorrhoea [Unknown]
  - Pyrexia [Unknown]
  - Lymphoid tissue hyperplasia [Unknown]
  - Eustachian tube dysfunction [Unknown]
  - Effusion [Unknown]
  - Nasal septum deviation [Unknown]
  - Nasal congestion [Unknown]
  - Foetal exposure during pregnancy [Unknown]
  - Decreased appetite [Unknown]
  - Face injury [Unknown]
  - Chronic tonsillitis [Unknown]
  - Cardiac murmur [Unknown]
  - Nasopharyngitis [Unknown]
  - Upper respiratory tract infection [Unknown]
  - Headache [Unknown]
  - Dysphagia [Unknown]
  - Influenza [Unknown]
  - Tonsillitis [Unknown]
  - Pneumonia [Unknown]
  - Pain [Unknown]
  - Abdominal pain [Unknown]
  - Tonsillar hypertrophy [Unknown]
  - Bronchitis [Unknown]
  - Laryngitis [Unknown]
